FAERS Safety Report 7265575-6 (Version None)
Quarter: 2011Q1

REPORT INFORMATION
  Report Type: 
  Country: None (occurrence: None)
  Receive Date: 20110131
  Receipt Date: 20101228
  Transmission Date: 20110831
  Serious: Yes (Other)
  Sender: FDA-Public Use
  Company Number: IT-ROCHE-755774

PATIENT
  Sex: Female

DRUGS (3)
  1. TORADOL [Suspect]
     Route: 030
     Dates: start: 20100611, end: 20100612
  2. NAPROSYN [Concomitant]
  3. MUSCORIL [Concomitant]

REACTIONS (1)
  - VAGINAL HAEMORRHAGE [None]
